FAERS Safety Report 6526405-0 (Version None)
Quarter: 2010Q1

REPORT INFORMATION
  Report Type: 
  Country: None (occurrence: None)
  Receive Date: 20100105
  Receipt Date: 20091229
  Transmission Date: 20100710
  Serious: Yes (Other)
  Sender: FDA-Public Use
  Company Number: GB-TYCO HEALTHCARE/MALLINCKRODT-T200902227

PATIENT
  Age: 65 Year
  Sex: Male

DRUGS (3)
  1. SODIUM IODIDE I 131 [Suspect]
     Indication: HYPERTHYROIDISM
     Dosage: 222 MBQ (6 MCI), SINGLE
     Dates: start: 19780101, end: 19780101
  2. CARBIMAZOLE [Concomitant]
     Indication: HYPERTHYROIDISM
     Dosage: UNK
  3. CARBIMAZOLE [Concomitant]
     Dosage: UNK

REACTIONS (3)
  - DYSPHONIA [None]
  - POST PROCEDURAL SWELLING [None]
  - VOCAL CORD PARALYSIS [None]
